FAERS Safety Report 9734972 (Version 1)
Quarter: 2013Q4

REPORT INFORMATION
  Report Type: Spontaneous
  Country: US (occurrence: US)
  Receive Date: 20131206
  Receipt Date: 20131206
  Transmission Date: 20140711
  Serious: No
  Sender: FDA-Public Use
  Company Number: US-PFIZER INC-2013347631

PATIENT
  Sex: Male

DRUGS (1)
  1. LYRICA [Suspect]
     Indication: NEUROPATHY PERIPHERAL
     Dosage: 600 MG, 1X/DAY (LYRICA 150 MG, 600MG/DAY)

REACTIONS (4)
  - Inappropriate schedule of drug administration [Unknown]
  - Drug effect incomplete [Unknown]
  - Therapeutic response unexpected [Unknown]
  - Confusional state [Unknown]
